FAERS Safety Report 24828411 (Version 1)
Quarter: 2025Q1

REPORT INFORMATION
  Report Type: Spontaneous
  Country: ES (occurrence: ES)
  Receive Date: 20250110
  Receipt Date: 20250110
  Transmission Date: 20250409
  Serious: Yes (Life-Threatening)
  Sender: NOVO NORDISK
  Company Number: None

PATIENT
  Age: 5 Year
  Sex: Female

DRUGS (2)
  1. ACTRAPID [Suspect]
     Active Substance: INSULIN HUMAN
     Route: 058
     Dates: start: 20241219
  2. ACTRAPID [Suspect]
     Active Substance: INSULIN HUMAN
     Indication: Diabetes mellitus
     Route: 058
     Dates: start: 20231219, end: 20231219

REACTIONS (3)
  - Accidental overdose [Recovered/Resolved]
  - Nausea [Recovered/Resolved]
  - Vomiting [Recovered/Resolved]

NARRATIVE: CASE EVENT DATE: 20231219
